FAERS Safety Report 5341693-4 (Version None)
Quarter: 2007Q2

REPORT INFORMATION
  Report Type: 
  Country: None (occurrence: None)
  Receive Date: 20070530
  Receipt Date: 20070412
  Transmission Date: 20071010
  Serious: Yes (Other)
  Sender: FDA-Public Use
  Company Number: 6032928

PATIENT
  Age: 31 Year
  Sex: Female

DRUGS (5)
  1. PAROXETINE [Suspect]
     Indication: DEPRESSION
     Dosage: (20 MG)
     Route: 048
  2. PAROXETINE [Suspect]
     Indication: SUICIDAL IDEATION
     Dosage: (20 MG)
     Route: 048
  3. SERTRALINE [Suspect]
     Indication: PANIC DISORDER
     Dosage: SEE IMAGE
  4. SERTRALINE [Suspect]
     Indication: PANIC DISORDER
     Dosage: SEE IMAGE
  5. ALPRAZOLAM [Concomitant]

REACTIONS (11)
  - AGITATION [None]
  - ALCOHOL POISONING [None]
  - DEPRESSION [None]
  - HOMICIDE [None]
  - INCORRECT DOSE ADMINISTERED [None]
  - LOSS OF CONSCIOUSNESS [None]
  - OVERDOSE [None]
  - RESTLESSNESS [None]
  - SUICIDAL IDEATION [None]
  - SUICIDE ATTEMPT [None]
  - TENSION [None]
